FAERS Safety Report 14068487 (Version 1)
Quarter: 2017Q4

REPORT INFORMATION
  Report Type: Spontaneous
  Country: US (occurrence: US)
  Receive Date: 20171010
  Receipt Date: 20171010
  Transmission Date: 20180321
  Serious: Yes (Disabling)
  Sender: FDA-Public Use
  Company Number: None

PATIENT
  Age: 53 Year
  Sex: Male
  Weight: 83.25 kg

DRUGS (5)
  1. WALPHED D MAXIMUM STRENGTH NON DROWSY SINUS [Suspect]
     Active Substance: PSEUDOEPHEDRINE HYDROCHLORIDE
     Indication: BRONCHITIS
     Dosage: ?          QUANTITY:20 TABLET(S);?
     Route: 048
     Dates: start: 20171005, end: 20171008
  2. NEXIUM [Concomitant]
     Active Substance: ESOMEPRAZOLE MAGNESIUM
  3. WALPHED D MAXIMUM STRENGTH NON DROWSY SINUS [Suspect]
     Active Substance: PSEUDOEPHEDRINE HYDROCHLORIDE
     Indication: SINUSITIS
     Dosage: ?          QUANTITY:20 TABLET(S);?
     Route: 048
     Dates: start: 20171005, end: 20171008
  4. LISINOPRIL. [Concomitant]
     Active Substance: LISINOPRIL
  5. ADVIL [Concomitant]
     Active Substance: IBUPROFEN

REACTIONS (4)
  - Infection [None]
  - Product advertising issue [None]
  - Drug ineffective [None]
  - Therapy change [None]

NARRATIVE: CASE EVENT DATE: 20171005
